FAERS Safety Report 22657968 (Version 1)
Quarter: 2023Q2

REPORT INFORMATION
  Report Type: Other
  Country: US (occurrence: None)
  Receive Date: 20230630
  Receipt Date: 20230630
  Transmission Date: 20230722
  Serious: Yes (Other)
  Sender: FDA-Public Use
  Company Number: US-ROCHE-3377915

PATIENT
  Age: 53 Year
  Sex: Female
  Weight: 79 kg

DRUGS (17)
  1. BEVACIZUMAB [Suspect]
     Active Substance: BEVACIZUMAB
     Indication: Invasive breast carcinoma
     Dosage: (CYCLES 1-4), OVER 30-90 MIN ON DAY 1, (TOTAL ADMINISTERED THIS COURSE 1214 MG, LAST ADMINISTERED DA
     Route: 042
     Dates: start: 20101025
  2. BEVACIZUMAB [Suspect]
     Active Substance: BEVACIZUMAB
     Dosage: (CYCLES 5-8), OVER 30-90 MIN ON DAY 1
     Route: 042
  3. PACLITAXEL [Suspect]
     Active Substance: PACLITAXEL
     Indication: Invasive breast carcinoma
     Dosage: (CYCLES 5-8), OVER 1 HR ON DAYS 1, 8 AND 15, (TOTAL ADMINISTERED THIS COURSE 152 MG, LAST ADMINISTER
     Route: 042
  4. DOXORUBICIN [Suspect]
     Active Substance: DOXORUBICIN
     Indication: Invasive breast carcinoma
     Dosage: ON DAY 1, (TOTAL ADMINISTERED THIS COURSE 0 MG, LAST ADMINISTERED DATE: 06/DEC/2010)
     Dates: start: 20101025
  5. CYCLOPHOSPHAMIDE [Suspect]
     Active Substance: CYCLOPHOSPHAMIDE
     Indication: Invasive breast carcinoma
     Dosage: OVER 20-30 MIN ON DAY 1, (TOTAL ADMINISTERED THIS COURSE 0 MG, LAST ADMINISTERED DATE: 06/DEC/2010)
     Route: 042
     Dates: start: 20101025
  6. FILGRASTIM [Suspect]
     Active Substance: FILGRASTIM
     Indication: Invasive breast carcinoma
     Dosage: 5MCG/KG, DAYS 2-11, (TOTAL ADMINISTERED THIS COURSE 0 MCG, LAST ADMINISTERED DATE: 17/DEC/2010)
     Route: 058
     Dates: start: 20101025
  7. ADVAIR HFA [Concomitant]
     Active Substance: FLUTICASONE PROPIONATE\SALMETEROL XINAFOATE
  8. DEXAMETHASONE [Concomitant]
     Active Substance: DEXAMETHASONE
  9. DIPHENHYDRAMINE [Concomitant]
     Active Substance: DIPHENHYDRAMINE
  10. IBUPROFEN [Concomitant]
     Active Substance: IBUPROFEN
  11. LORAZEPAM [Concomitant]
     Active Substance: LORAZEPAM
  12. MONTELUKAST [Concomitant]
     Active Substance: MONTELUKAST SODIUM
  13. ONDANSETRON [Concomitant]
     Active Substance: ONDANSETRON
  14. PALONOSETRON [Concomitant]
     Active Substance: PALONOSETRON
  15. PROCHLORPERAZINE [Concomitant]
     Active Substance: PROCHLORPERAZINE
  16. RANITIDINE [Concomitant]
     Active Substance: RANITIDINE
  17. WARFARIN [Concomitant]
     Active Substance: WARFARIN

REACTIONS (2)
  - Left ventricular dysfunction [Unknown]
  - Cardiac valve disease [Unknown]

NARRATIVE: CASE EVENT DATE: 20110314
